FAERS Safety Report 7910647-3 (Version None)
Quarter: 2011Q4

REPORT INFORMATION
  Report Type: 
  Country: None (occurrence: None)
  Receive Date: 20111111
  Receipt Date: 20101217
  Transmission Date: 20120403
  Serious: Yes (Hospitalization)
  Sender: FDA-Public Use
  Company Number: US-ROCHE-1009271

PATIENT
  Sex: Male
  Weight: 74.91 kg

DRUGS (8)
  1. IRON [Concomitant]
  2. CRESTOR [Concomitant]
  3. MULTI-VITAMINS [Concomitant]
     Dosage: 1TAB
  4. VITAMIN D [Concomitant]
  5. ASPIRIN [Concomitant]
  6. VEMURAFENIB [Suspect]
     Route: 048
  7. NORVASC [Concomitant]
  8. VEMURAFENIB [Suspect]
     Indication: METASTATIC MALIGNANT MELANOMA
     Dosage: LAST DOSE PRIOR TO SAE:15/DEC/2010
     Route: 048
     Dates: start: 20100524, end: 20101216

REACTIONS (1)
  - ORBITAL OEDEMA [None]
